FAERS Safety Report 6036137-3 (Version None)
Quarter: 2009Q1

REPORT INFORMATION
  Report Type: 
  Country: None (occurrence: None)
  Receive Date: 20090113
  Receipt Date: 20090107
  Transmission Date: 20090719
  Serious: Yes (Life-Threatening, Other)
  Sender: FDA-Public Use
  Company Number: GB-WYE-G01982008

PATIENT
  Sex: Male
  Weight: 14 kg

DRUGS (3)
  1. BENEFIX [Suspect]
     Indication: FACTOR IX DEFICIENCY
     Dosage: 70 IU/KG EVERY 1 TOT
     Route: 042
     Dates: start: 20080618, end: 20080618
  2. BENEFIX [Suspect]
     Dosage: 70 IU/KG EVERY 1 TOT
     Route: 042
     Dates: start: 20080701, end: 20080701
  3. BENEFIX [Suspect]
     Dosage: 70 IU/KG EVERY 1 TOT
     Route: 042
     Dates: start: 20080806, end: 20080806

REACTIONS (2)
  - ANAPHYLACTIC REACTION [None]
  - FACTOR IX INHIBITION [None]
